FAERS Safety Report 4731836-5 (Version None)
Quarter: 2005Q3

REPORT INFORMATION
  Report Type: 
  Country: None (occurrence: None)
  Receive Date: 20050719
  Receipt Date: 20041126
  Transmission Date: 20060218
  Serious: Yes (Hospitalization)
  Sender: FDA-Public Use
  Company Number: 2004BI000256

PATIENT
  Age: 29 Year
  Sex: Male
  Weight: 79.3795 kg

DRUGS (8)
  1. AVONEX [Suspect]
     Indication: MULTIPLE SCLEROSIS
     Dosage: 30 UG;QW;IM
     Route: 030
     Dates: start: 20021001
  2. AVONEX [Suspect]
     Indication: MULTIPLE SCLEROSIS
     Dosage: 30 UG;QW;IM
     Route: 030
  3. BACLOFEN [Concomitant]
  4. DITROPAN [Concomitant]
  5. ASPIRIN (SALICYLATE) [Concomitant]
  6. PROVIGIL [Concomitant]
  7. XANAX [Concomitant]
  8. AMBIEN [Concomitant]

REACTIONS (2)
  - DIFFICULTY IN WALKING [None]
  - MULTIPLE SCLEROSIS [None]
